FAERS Safety Report 13555184 (Version 2)
Quarter: 2020Q2

REPORT INFORMATION
  Report Type: Spontaneous
  Country: IT (occurrence: IT)
  Receive Date: 20170517
  Receipt Date: 20200612
  Transmission Date: 20200713
  Serious: Yes (Other)
  Sender: FDA-Public Use
  Company Number: IT-MYLANLABS-2017M1029257

PATIENT
  Age: 29 Year
  Sex: Female

DRUGS (22)
  1. ELTROMBOPAG [Suspect]
     Active Substance: ELTROMBOPAG
     Indication: IMMUNE THROMBOCYTOPENIA
     Dosage: 50 MILLIGRAM, QD
     Route: 065
  2. ELTROMBOPAG [Suspect]
     Active Substance: ELTROMBOPAG
     Dosage: UNK
     Route: 065
     Dates: start: 201703
  3. CYCLOPHOSPHAMIDE. [Suspect]
     Active Substance: CYCLOPHOSPHAMIDE
     Dosage: 700 MG/M2
     Route: 065
     Dates: start: 2017
  4. VINCRISTINE [Suspect]
     Active Substance: VINCRISTINE
     Indication: IMMUNE THROMBOCYTOPENIA
     Dosage: 2.366 MILLIGRAM 3/WK
     Route: 065
  5. NPLATE [Suspect]
     Active Substance: ROMIPLOSTIM
     Indication: IMMUNE THROMBOCYTOPENIA
     Dosage: 1 MICROGRAM, QW, ADMINISTERED DURING PREGNANCY
     Route: 065
  6. PREDNISONE. [Suspect]
     Active Substance: PREDNISONE
     Dosage: UNK
     Route: 065
     Dates: start: 201703
  7. LEDIPASVIR [Concomitant]
     Active Substance: LEDIPASVIR
     Indication: HEPATITIS C
     Route: 065
  8. SOFOSBUVIR [Concomitant]
     Active Substance: SOFOSBUVIR
     Indication: HEPATITIS C
     Route: 065
  9. MYCOPHENOLATE MOFETIL. [Suspect]
     Active Substance: MYCOPHENOLATE MOFETIL
     Dosage: 3 GRAM, QD
     Route: 065
  10. PREDNISONE. [Suspect]
     Active Substance: PREDNISONE
     Indication: IMMUNE THROMBOCYTOPENIA
     Dosage: ADMINISTERED DURING PREGNANCY AT AN UNSPECIFIED DOSE
     Route: 065
  11. IMMUNE GLOBULIN (HUMAN) [Suspect]
     Active Substance: HUMAN IMMUNOGLOBULIN G
     Indication: IMMUNE THROMBOCYTOPENIA
     Dosage: ADMINISTERED DURING PREGNANCY AT AN UNSPECIFIED DOSE
     Route: 042
  12. NPLATE [Suspect]
     Active Substance: ROMIPLOSTIM
     Dosage: 10 MICROGRAM, QW, ADMINISTERED DURING PREGNANCY
     Route: 065
  13. ELTROMBOPAG [Suspect]
     Active Substance: ELTROMBOPAG
     Dosage: BETWEEN SEPTEMBER-DECEMBER 2017 AT UNKNOWN DOSE
     Route: 065
     Dates: start: 2017
  14. PREDNISONE. [Suspect]
     Active Substance: PREDNISONE
     Dosage: UNK
     Route: 065
     Dates: start: 201611
  15. CYCLOPHOSPHAMIDE. [Suspect]
     Active Substance: CYCLOPHOSPHAMIDE
     Indication: IMMUNE THROMBOCYTOPENIA
     Dosage: 1267.5 MILLIGRAM 3/WEEK
     Route: 065
  16. CYCLOSPORINE. [Concomitant]
     Active Substance: CYCLOSPORINE
     Indication: PRODUCT USED FOR UNKNOWN INDICATION
     Dosage: 50 MG X 2 UP TO 100 MG X 2 DAILY
     Route: 065
  17. IMMUNE GLOBULIN (HUMAN) [Suspect]
     Active Substance: HUMAN IMMUNOGLOBULIN G
     Dosage: UNK
     Route: 065
     Dates: start: 201611
  18. MYCOPHENOLATE MOFETIL. [Suspect]
     Active Substance: MYCOPHENOLATE MOFETIL
     Indication: IMMUNE THROMBOCYTOPENIA
     Dosage: 1 GRAM, QD
     Route: 065
  19. DEXAMETHASONE. [Suspect]
     Active Substance: DEXAMETHASONE
     Indication: IMMUNE THROMBOCYTOPENIA
     Dosage: 40 MG/KG(ADMINISTERED DURING PREGNANCY)
     Route: 065
  20. DEXAMETHASONE. [Suspect]
     Active Substance: DEXAMETHASONE
     Dosage: 40 MG/KG FOUR COURSES
     Route: 065
     Dates: start: 2017
  21. PREDNISONE. [Suspect]
     Active Substance: PREDNISONE
     Dosage: 68 MILLIGRAM 3/WEEK(WITH CVP CHEMOTHERAPY  )
     Route: 065
  22. DEXAMETHASONE. [Suspect]
     Active Substance: DEXAMETHASONE
     Dosage: 40 UNK
     Route: 065
     Dates: start: 2017

REACTIONS (9)
  - Treatment failure [Unknown]
  - Gingival bleeding [Unknown]
  - Maternal exposure during pregnancy [Recovered/Resolved]
  - Premature delivery [Recovered/Resolved]
  - Thrombocytopenia [Unknown]
  - Epistaxis [Unknown]
  - Off label use [Unknown]
  - Petechiae [Unknown]
  - Normal newborn [Recovered/Resolved]
